FAERS Safety Report 16373062 (Version 1)
Quarter: 2019Q2

REPORT INFORMATION
  Report Type: Spontaneous
  Country: US (occurrence: US)
  Receive Date: 20190530
  Receipt Date: 20190530
  Transmission Date: 20190711
  Serious: Yes (Other)
  Sender: FDA-Public Use
  Company Number: US-PFIZER INC-2019225842

PATIENT
  Age: 95 Year
  Sex: Female

DRUGS (1)
  1. PHOSPHOLINE IODIDE [Suspect]
     Active Substance: ECHOTHIOPHATE IODIDE
     Dosage: 1 GTT, 2X/DAY (0.125%; INSTILL ONE DROP IN RIGHT EYE TWICE A DAY)
     Route: 047

REACTIONS (2)
  - Tremor [Unknown]
  - Blindness [Unknown]
